FAERS Safety Report 7460796-1 (Version None)
Quarter: 2011Q2

REPORT INFORMATION
  Report Type: 
  Country: None (occurrence: None)
  Receive Date: 20110427
  Receipt Date: 20110318
  Transmission Date: 20111010
  Serious: Yes (Death, Life-Threatening, Other)
  Sender: FDA-Public Use
  Company Number: 2011S1000107

PATIENT
  Sex: Male

DRUGS (2)
  1. INOVENT (DELIVERY SYSTEM) [Suspect]
  2. INOMAX [Suspect]
     Indication: PULMONARY HYPERTENSION
     Dosage: ;CONT;INH
     Route: 055
     Dates: start: 20110317, end: 20110101

REACTIONS (2)
  - OXYGEN SATURATION DECREASED [None]
  - DEVICE FAILURE [None]
